FAERS Safety Report 14612886 (Version 2)
Quarter: 2018Q2

REPORT INFORMATION
  Report Type: Spontaneous
  Country: JP (occurrence: JP)
  Receive Date: 20180308
  Receipt Date: 20180424
  Transmission Date: 20180711
  Serious: Yes (Death)
  Sender: FDA-Public Use
  Company Number: JP-BIOCRYST PHARMACEUTICALS, INC.-2018BCR00083

PATIENT
  Age: 77 Year
  Sex: Male

DRUGS (8)
  1. MAGMITT [Concomitant]
     Active Substance: MAGNESIUM OXIDE
     Dosage: 6 DOSAGE UNITS, 1X/DAY
  2. REQUIP [Concomitant]
     Active Substance: ROPINIROLE HYDROCHLORIDE
     Dosage: 2 MG, 1X/DAY
  3. RAPIACTA [Suspect]
     Active Substance: PERAMIVIR
     Indication: INFLUENZA
     Dosage: 300 MG, UNK
     Route: 042
     Dates: start: 20180213
  4. TRAZENTA [Concomitant]
     Active Substance: LINAGLIPTIN
     Dosage: UNK UNK, 1X/DAY
  5. MASHININGAN [Concomitant]
     Active Substance: HERBALS
     Dosage: 7.5 G, 1X/DAY
  6. ALDACTONE A [Concomitant]
     Active Substance: SPIRONOLACTONE
     Dosage: 1 DOSAGE UNITS, 1X/DAY
  7. MENESIT [Concomitant]
     Active Substance: CARBIDOPA\LEVODOPA
     Dosage: 400 MG, 1X/DAY
  8. GLUFAST [Concomitant]
     Active Substance: MITIGLINIDE
     Dosage: 5 MG, 1X/DAY

REACTIONS (1)
  - Death [Fatal]

NARRATIVE: CASE EVENT DATE: 20180215
